FAERS Safety Report 6276418-1 (Version None)
Quarter: 2009Q3

REPORT INFORMATION
  Report Type: 
  Country: None (occurrence: None)
  Receive Date: 20090717
  Receipt Date: 20090717
  Transmission Date: 20100115
  Serious: Yes (Hospitalization)
  Sender: FDA-Public Use
  Company Number: None

PATIENT
  Sex: Male
  Weight: 74 kg

DRUGS (3)
  1. CISPLATIN [Suspect]
     Dosage: 390 MG
     Dates: end: 20090427
  2. LISINOPRIL [Concomitant]
  3. MICARDIS [Concomitant]

REACTIONS (8)
  - ANAEMIA [None]
  - BLOOD CREATININE INCREASED [None]
  - BLOOD UREA INCREASED [None]
  - DEHYDRATION [None]
  - HYPERKALAEMIA [None]
  - PLATELET COUNT INCREASED [None]
  - POST PROCEDURAL HAEMORRHAGE [None]
  - WHITE BLOOD CELL COUNT INCREASED [None]
